FAERS Safety Report 7232041-3 (Version None)
Quarter: 2011Q1

REPORT INFORMATION
  Report Type: 
  Country: None (occurrence: None)
  Receive Date: 20110118
  Receipt Date: 20101214
  Transmission Date: 20110831
  Serious: Yes (Hospitalization)
  Sender: FDA-Public Use
  Company Number: PHHY2010US90229

PATIENT
  Sex: Female
  Weight: 68 kg

DRUGS (8)
  1. FELODIPINE [Concomitant]
  2. FEXOFENADINE HCL [Concomitant]
  3. CALCIUM [Concomitant]
  4. TELMISARTAN AND HYDROCHLOROTHIAZIDE [Concomitant]
  5. INTERFERON BETA-1B [Suspect]
     Dosage: 8 MIU, QOD
     Route: 058
     Dates: start: 20070401
  6. VITAMIN D [Concomitant]
  7. INTERFERON BETA-1B [Suspect]
     Indication: RELAPSING-REMITTING MULTIPLE SCLEROSIS
     Dosage: 8 MIU, QOD
     Route: 058
     Dates: start: 20030414, end: 20070122
  8. MONTELUKAST [Concomitant]

REACTIONS (5)
  - GLOMUS TUMOUR [None]
  - BURNING SENSATION [None]
  - NIGHT SWEATS [None]
  - ANAEMIA [None]
  - PYREXIA [None]
